FAERS Safety Report 6091818-0 (Version None)
Quarter: 2009Q1

REPORT INFORMATION
  Report Type: 
  Country: None (occurrence: None)
  Receive Date: 20090225
  Receipt Date: 20080715
  Transmission Date: 20090719
  Serious: No
  Sender: FDA-Public Use
  Company Number: A0737703A

PATIENT
  Age: 38 Year
  Sex: Male

DRUGS (2)
  1. VALTREX [Suspect]
     Indication: FIBROMYALGIA
     Dosage: 1G THREE TIMES PER DAY
     Route: 048
     Dates: start: 20080101
  2. NONE [Concomitant]

REACTIONS (1)
  - HEADACHE [None]
